FAERS Safety Report 9350652 (Version 2)
Quarter: 2013Q2

REPORT INFORMATION
  Report Type: Spontaneous
  Country: JP (occurrence: JP)
  Receive Date: 20130617
  Receipt Date: 20130627
  Transmission Date: 20140414
  Serious: Yes (Other)
  Sender: FDA-Public Use
  Company Number: PHHY2013JP061050

PATIENT
  Age: 74 Year
  Sex: Female

DRUGS (4)
  1. LETROZOLE [Suspect]
     Indication: BREAST CANCER
     Dosage: UNK UKN, UNK
     Route: 048
  2. EXEMESTANE [Concomitant]
     Dosage: UNK UKN, UNK
     Route: 048
  3. ENDOCRINE THERAPY [Concomitant]
     Dosage: UNK UKN, UNK
  4. RADIATION THERAPY [Concomitant]
     Dosage: UNK UKN, UNK

REACTIONS (3)
  - Organising pneumonia [Unknown]
  - C-reactive protein increased [Unknown]
  - Cough [Unknown]
